FAERS Safety Report 5394096-0 (Version None)
Quarter: 2007Q3

REPORT INFORMATION
  Report Type: 
  Country: None (occurrence: None)
  Receive Date: 20070723
  Receipt Date: 20070309
  Transmission Date: 20080115
  Serious: No
  Sender: FDA-Public Use
  Company Number: A0642913A

PATIENT

DRUGS (1)
  1. AVANDIA [Suspect]

REACTIONS (1)
  - HUNGER [None]
